FAERS Safety Report 6959061-8 (Version None)
Quarter: 2010Q3

REPORT INFORMATION
  Report Type: 
  Country: None (occurrence: None)
  Receive Date: 20100831
  Receipt Date: 20100827
  Transmission Date: 20110219
  Serious: Yes (Death)
  Sender: FDA-Public Use
  Company Number: CHNY2010GB00490

PATIENT
  Age: 2 Year
  Sex: Female

DRUGS (2)
  1. HYOSCINE HYDROBROMIDE (NCH) [Suspect]
     Indication: SALIVARY HYPERSECRETION
     Route: 062
  2. GLYCOPYRROLATE [Suspect]
     Indication: SALIVARY HYPERSECRETION
     Dosage: 0.050 MG/KG, UNK

REACTIONS (3)
  - ASPIRATION [None]
  - LOSS OF CONSCIOUSNESS [None]
  - VOMITING [None]
